FAERS Safety Report 6847400-8 (Version None)
Quarter: 2010Q3

REPORT INFORMATION
  Report Type: 
  Country: None (occurrence: None)
  Receive Date: 20100716
  Receipt Date: 20100712
  Transmission Date: 20110219
  Serious: Yes (Hospitalization, Other)
  Sender: FDA-Public Use
  Company Number: US-ELI_LILLY_AND_COMPANY-US200812004650

PATIENT
  Sex: Female
  Weight: 95.692 kg

DRUGS (12)
  1. BYETTA [Suspect]
     Dosage: 5 UG, 2/D
     Route: 065
     Dates: start: 20070310, end: 20070322
  2. NEXIUM [Concomitant]
     Indication: GASTROOESOPHAGEAL REFLUX DISEASE
     Dates: start: 20070101
  3. NORMODYNE [Concomitant]
     Indication: HYPERTENSION
     Dates: start: 19970101
  4. DIOVAN HCT [Concomitant]
     Dates: start: 20040101
  5. KLONOPIN [Concomitant]
     Indication: ANXIETY
     Dates: start: 19990101
  6. LESCOL [Concomitant]
     Indication: BLOOD CHOLESTEROL
     Dates: start: 19990101
  7. ZETIA [Concomitant]
     Indication: BLOOD CHOLESTEROL
     Dates: start: 19990101
  8. CRESTOR [Concomitant]
     Indication: BLOOD CHOLESTEROL INCREASED
     Dates: start: 19990101
  9. GENTAMICIN [Concomitant]
     Indication: URINARY TRACT INFECTION
  10. ACTOS [Concomitant]
     Dosage: UNK, UNKNOWN
  11. ACTOS [Concomitant]
     Dosage: UNK, UNKNOWN
     Dates: start: 20070401, end: 20070701
  12. METFORMIN HCL [Concomitant]
     Dates: start: 20070401, end: 20070701

REACTIONS (5)
  - ABDOMINAL PAIN [None]
  - LYMPHOID TISSUE HYPERPLASIA [None]
  - PANCREATIC NEOPLASM [None]
  - PANCREATITIS [None]
  - RENAL MASS [None]
